FAERS Safety Report 9186850 (Version 1)
Quarter: 2013Q1

REPORT INFORMATION
  Report Type: Spontaneous
  Country: US (occurrence: US)
  Receive Date: 20130325
  Receipt Date: 20130325
  Transmission Date: 20140127
  Serious: Yes (Hospitalization)
  Sender: FDA-Public Use
  Company Number: US-GLAXOSMITHKLINE-A0702492A

PATIENT
  Age: 61 Year
  Sex: Male

DRUGS (10)
  1. AVANDIA [Suspect]
     Indication: TYPE 2 DIABETES MELLITUS
     Dosage: 4MG TWICE PER DAY
     Route: 048
     Dates: start: 20050101, end: 20060701
  2. NEURONTIN [Concomitant]
  3. TOPROL XL [Concomitant]
  4. PRAVACHOL [Concomitant]
  5. NEXIUM [Concomitant]
  6. GEMFIBROZIL [Concomitant]
  7. SULFASALAZINE [Concomitant]
  8. DIFLUCAN [Concomitant]
  9. CPAP [Concomitant]
  10. PLAVIX [Concomitant]
     Dates: start: 20020416

REACTIONS (2)
  - Myocardial infarction [Not Recovered/Not Resolved]
  - Coronary artery disease [Unknown]
